FAERS Safety Report 4865744-6 (Version None)
Quarter: 2005Q4

REPORT INFORMATION
  Report Type: 
  Country: None (occurrence: None)
  Receive Date: 20051220
  Receipt Date: 20051212
  Transmission Date: 20060501
  Serious: Yes (Other)
  Sender: FDA-Public Use
  Company Number: 13045

PATIENT
  Age: 56 Year
  Sex: Female
  Weight: 63 kg

DRUGS (1)
  1. CARBOPLATIN [Suspect]
     Dosage: 400 MG FREQ IV
     Route: 042
     Dates: start: 20051107, end: 20051107

REACTIONS (1)
  - HYPERSENSITIVITY [None]
